FAERS Safety Report 5806627-4 (Version None)
Quarter: 2008Q3

REPORT INFORMATION
  Report Type: 
  Country: None (occurrence: None)
  Receive Date: 20080710
  Receipt Date: 20080701
  Transmission Date: 20090109
  Serious: Yes (Other)
  Sender: FDA-Public Use
  Company Number: PHHY2008GB13017

PATIENT
  Age: 61 Year
  Sex: Male

DRUGS (6)
  1. DICLOFENAC SODIUM [Suspect]
     Dosage: 50MG/DAY
     Route: 048
     Dates: start: 20051001
  2. ENBREL [Suspect]
     Dosage: 50 MG/WEEK
     Route: 058
     Dates: start: 20070425, end: 20000215
  3. FOLIC ACID [Suspect]
     Dosage: 5 MG/DAY
     Route: 048
     Dates: start: 20061013, end: 20080501
  4. METHOTREXATE [Suspect]
     Dosage: 15 MG/WEEK
     Route: 048
     Dates: start: 20061013, end: 20080501
  5. OMEPRAZOLE [Suspect]
     Dosage: 10 MG/DAY
     Route: 048
     Dates: start: 20070320
  6. SULFASALAZINE [Suspect]
     Dosage: 1.5 MG TWICE DAILY
     Route: 048
     Dates: start: 20010801, end: 20071001

REACTIONS (2)
  - BIOPSY [None]
  - TONSIL CANCER [None]
